FAERS Safety Report 26134973 (Version 1)
Quarter: 2025Q4

REPORT INFORMATION
  Report Type: Other
  Country: GB (occurrence: GB)
  Receive Date: 20251209
  Receipt Date: 20251209
  Transmission Date: 20260117
  Serious: Yes (Other)
  Sender: GLENMARK
  Company Number: None

PATIENT

DRUGS (2)
  1. GABAPENTIN [Suspect]
     Active Substance: GABAPENTIN
     Indication: Sciatica
     Dosage: 300 MILLIGRAM, TID (300 MILLIGRAM THREE TIMES A DAY)
     Route: 065
     Dates: start: 2023
  2. GABAPENTIN [Suspect]
     Active Substance: GABAPENTIN
     Dosage: UNK (REDUCED DOSE)
     Route: 065

REACTIONS (3)
  - Delusion [Not Recovered/Not Resolved]
  - Dementia [Unknown]
  - Medication error [Unknown]

NARRATIVE: CASE EVENT DATE: 20250701
